FAERS Safety Report 5993047-5 (Version None)
Quarter: 2008Q4

REPORT INFORMATION
  Report Type: 
  Country: None (occurrence: None)
  Receive Date: 20081210
  Receipt Date: 20081210
  Transmission Date: 20090506
  Serious: Yes (Life-Threatening, Hospitalization)
  Sender: FDA-Public Use
  Company Number: None

PATIENT
  Age: 60 Year
  Sex: Male
  Weight: 82.1 kg

DRUGS (2)
  1. CARBAMAZEPINE [Suspect]
     Indication: AFFECTIVE DISORDER
     Dosage: PO
     Route: 048
     Dates: start: 20081007, end: 20081127
  2. CARBAMAZEPINE [Suspect]
     Indication: HEADACHE
     Dosage: PO
     Route: 048
     Dates: start: 20081007, end: 20081127

REACTIONS (7)
  - DRUG HYPERSENSITIVITY [None]
  - DRUG RASH WITH EOSINOPHILIA AND SYSTEMIC SYMPTOMS [None]
  - DYSURIA [None]
  - EOSINOPHILIC PUSTULAR FOLLICULITIS [None]
  - STEVENS-JOHNSON SYNDROME [None]
  - TOXIC EPIDERMAL NECROLYSIS [None]
  - VIRAL UPPER RESPIRATORY TRACT INFECTION [None]
